FAERS Safety Report 7516771-1 (Version None)
Quarter: 2011Q2

REPORT INFORMATION
  Report Type: 
  Country: None (occurrence: None)
  Receive Date: 20110601
  Receipt Date: 20110525
  Transmission Date: 20111010
  Serious: Yes (Hospitalization)
  Sender: FDA-Public Use
  Company Number: PHHY2011US44918

PATIENT
  Age: 44 Year
  Sex: Female

DRUGS (1)
  1. COTRIM [Suspect]
     Indication: URINARY TRACT INFECTION
     Dosage: 80/400 MG, TWO TABLETS PER DAY FOR 1 WEEK

REACTIONS (14)
  - NAUSEA [None]
  - CARDIAC MURMUR [None]
  - RENAL FAILURE [None]
  - HAEMOGLOBINURIA [None]
  - CHEST DISCOMFORT [None]
  - CHILLS [None]
  - HAEMOGLOBIN DECREASED [None]
  - HYPERGAMMAGLOBULINAEMIA [None]
  - VOMITING [None]
  - FATIGUE [None]
  - HAEMOLYTIC ANAEMIA [None]
  - DEHYDRATION [None]
  - PAIN [None]
  - RASH [None]
